FAERS Safety Report 24809256 (Version 1)
Quarter: 2025Q1

REPORT INFORMATION
  Report Type: Spontaneous
  Country: CH (occurrence: CH)
  Receive Date: 20250106
  Receipt Date: 20250106
  Transmission Date: 20250409
  Serious: Yes (Death, Hospitalization, Other)
  Sender: AIPING PHARMACEUTICAL
  Company Number: CH-AIPING-2024AILIT00039

PATIENT
  Age: 87 Year

DRUGS (2)
  1. HALOPERIDOL [Suspect]
     Active Substance: HALOPERIDOL
     Indication: Delirium
     Route: 065
  2. PIPAMPERONE [Suspect]
     Active Substance: PIPAMPERONE
     Indication: Delirium
     Route: 065

REACTIONS (1)
  - Aspiration [Fatal]
